FAERS Safety Report 11526726 (Version 1)
Quarter: 2015Q3

REPORT INFORMATION
  Report Type: Spontaneous
  Country: US (occurrence: US)
  Receive Date: 20150903
  Receipt Date: 20150903
  Transmission Date: 20151125
  Serious: No
  Sender: FDA-Public Use
  Company Number: US-ELI_LILLY_AND_COMPANY-US201405004016

PATIENT
  Sex: Male

DRUGS (8)
  1. DILTIAZEM [Interacting]
     Active Substance: DILTIAZEM
     Dosage: 120MG, UNK
  2. SIMVASTATIN. [Concomitant]
     Active Substance: SIMVASTATIN
     Indication: BLOOD CHOLESTEROL INCREASED
  3. OMEPRAZOL [Interacting]
     Active Substance: OMEPRAZOLE
  4. CYMBALTA [Interacting]
     Active Substance: DULOXETINE HYDROCHLORIDE
     Dosage: 60MG, ONE QD
     Route: 048
     Dates: end: 20140512
  5. PRADAXA [Interacting]
     Active Substance: DABIGATRAN ETEXILATE MESYLATE
  6. VICODIN [Interacting]
     Active Substance: ACETAMINOPHEN\HYDROCODONE BITARTRATE
  7. LORAZEPAM. [Interacting]
     Active Substance: LORAZEPAM
  8. CYMBALTA [Suspect]
     Active Substance: DULOXETINE HYDROCHLORIDE
     Indication: DEPRESSION
     Dosage: 30MG, ONE QD
     Route: 048
     Dates: start: 201311

REACTIONS (4)
  - Drug interaction [Unknown]
  - Hallucination, visual [Recovered/Resolved]
  - Expired product administered [Unknown]
  - Intentional product use issue [Unknown]
